FAERS Safety Report 7685758-0 (Version None)
Quarter: 2011Q3

REPORT INFORMATION
  Report Type: 
  Country: None (occurrence: None)
  Receive Date: 20110815
  Receipt Date: 20110815
  Transmission Date: 20111222
  Serious: Yes (Other)
  Sender: FDA-Public Use
  Company Number: None

PATIENT
  Age: 60 Year
  Sex: Male
  Weight: 65.317 kg

DRUGS (2)
  1. DILTIAZEM [Suspect]
     Indication: GASTROINTESTINAL PAIN
     Dates: start: 20110719, end: 20110802
  2. DILTIAZEM [Suspect]
     Indication: RENAL PAIN
     Dates: start: 20110719, end: 20110802

REACTIONS (9)
  - FLAT AFFECT [None]
  - MALAISE [None]
  - HYPERAESTHESIA [None]
  - URTICARIA [None]
  - CHAPPED LIPS [None]
  - SKIN EXFOLIATION [None]
  - GAIT DISTURBANCE [None]
  - SOMNOLENCE [None]
  - ORAL PAIN [None]
